FAERS Safety Report 16871113 (Version 1)
Quarter: 2019Q3

REPORT INFORMATION
  Report Type: Spontaneous
  Country: US (occurrence: US)
  Receive Date: 20190930
  Receipt Date: 20190930
  Transmission Date: 20191005
  Serious: No
  Sender: FDA-Public Use
  Company Number: US-TAKEDA-2019TUS054473

PATIENT
  Sex: Male

DRUGS (11)
  1. ONDANSETRON [Concomitant]
     Active Substance: ONDANSETRON
  2. HYDROCODONE [Concomitant]
     Active Substance: HYDROCODONE
  3. NINLARO [Suspect]
     Active Substance: IXAZOMIB CITRATE
     Indication: PLASMA CELL LEUKAEMIA
     Dosage: 4 MILLIGRAM
     Route: 048
  4. PAMIDRONATE [Concomitant]
     Active Substance: PAMIDRONATE DISODIUM
  5. VENTOLIN [Concomitant]
     Active Substance: ALBUTEROL SULFATE
  6. CYCLOPHOSPHAMIDE. [Concomitant]
     Active Substance: CYCLOPHOSPHAMIDE
  7. PROCHLORPERAZINE. [Concomitant]
     Active Substance: PROCHLORPERAZINE
  8. GABAPENTIN. [Concomitant]
     Active Substance: GABAPENTIN
  9. ZOLPIDEM [Concomitant]
     Active Substance: ZOLPIDEM TARTRATE
  10. DEXAMETHASONE. [Concomitant]
     Active Substance: DEXAMETHASONE
  11. APAP [Concomitant]
     Active Substance: ACETAMINOPHEN

REACTIONS (2)
  - Off label use [Unknown]
  - Mass [Unknown]
